FAERS Safety Report 7705813-6 (Version None)
Quarter: 2011Q3

REPORT INFORMATION
  Report Type: 
  Country: None (occurrence: None)
  Receive Date: 20110824
  Receipt Date: 20110815
  Transmission Date: 20111222
  Serious: No
  Sender: FDA-Public Use
  Company Number: CA-ELI_LILLY_AND_COMPANY-CA201108004600

PATIENT
  Sex: Male

DRUGS (4)
  1. ZYPREXA [Suspect]
     Dosage: 10 MG, QD
  2. ZYPREXA [Suspect]
     Dosage: 20 MG, QD
  3. ZYPREXA [Suspect]
     Dosage: 5 MG, QD
  4. CELEXA [Concomitant]

REACTIONS (10)
  - MULTIPLE SCLEROSIS [None]
  - BLOOD PRESSURE INCREASED [None]
  - LIPIDS INCREASED [None]
  - GLUCOSE TOLERANCE IMPAIRED [None]
  - DIABETES MELLITUS [None]
  - DIABETIC ENDORGAN DAMAGE [None]
  - WHITE BLOOD CELL COUNT INCREASED [None]
  - BLOOD CHOLESTEROL INCREASED [None]
  - PLATELET COUNT INCREASED [None]
  - ALANINE AMINOTRANSFERASE INCREASED [None]
